FAERS Safety Report 4637104-4 (Version None)
Quarter: 2005Q2

REPORT INFORMATION
  Report Type: 
  Country: None (occurrence: None)
  Receive Date: 20050325
  Receipt Date: 20041130
  Transmission Date: 20051028
  Serious: No
  Sender: FDA-Public Use
  Company Number: USA041082407

PATIENT
  Age: 64 Year
  Sex: Female

DRUGS (3)
  1. FORTEO [Suspect]
     Indication: OSTEOPOROSIS
     Dosage: 20 UG DAY
     Dates: start: 20041025
  2. METHOTREXATE [Concomitant]
  3. CALCIUM GLUCONATE [Concomitant]

REACTIONS (7)
  - DIZZINESS [None]
  - EXCORIATION [None]
  - FATIGUE [None]
  - HAEMORRHAGE [None]
  - LIMB DISCOMFORT [None]
  - MEDICATION ERROR [None]
  - OVERDOSE [None]
